FAERS Safety Report 18886528 (Version 1)
Quarter: 2021Q1

REPORT INFORMATION
  Report Type: Spontaneous
  Country: US (occurrence: US)
  Receive Date: 20210212
  Receipt Date: 20210212
  Transmission Date: 20210420
  Serious: Yes (Hospitalization, Other)
  Sender: FDA-Public Use
  Company Number: US-B.I. PHARMACEUTICALS,INC./RIDGEFIELD-2021-BI-082685

PATIENT

DRUGS (11)
  1. KETOROLAC [Suspect]
     Active Substance: KETOROLAC TROMETHAMINE
     Indication: ANALGESIC THERAPY
  2. FENTANYL. [Suspect]
     Active Substance: FENTANYL
     Indication: BREAKTHROUGH PAIN
  3. GABAPENTIN. [Suspect]
     Active Substance: GABAPENTIN
     Indication: ANALGESIC THERAPY
  4. BUPIVACAINE. [Suspect]
     Active Substance: BUPIVACAINE
     Indication: SPINAL ANAESTHESIA
  5. ASPIRIN CARDIO [Suspect]
     Active Substance: ASPIRIN
     Indication: PROPHYLAXIS
     Dosage: UNK, BID
  6. MELOXICAM. [Suspect]
     Active Substance: MELOXICAM
     Indication: ANALGESIC THERAPY
  7. CELECOXIB. [Suspect]
     Active Substance: CELECOXIB
     Indication: SPINAL ANAESTHESIA
  8. OXYCODONE [Suspect]
     Active Substance: OXYCODONE
     Indication: BREAKTHROUGH PAIN
  9. PARACETAMOL [Suspect]
     Active Substance: ACETAMINOPHEN
     Indication: PRODUCT USED FOR UNKNOWN INDICATION
  10. ULTRAM ER [Suspect]
     Active Substance: TRAMADOL HYDROCHLORIDE
     Indication: BREAKTHROUGH PAIN
  11. HYDROMORPHONE HCL [Suspect]
     Active Substance: HYDROMORPHONE HYDROCHLORIDE
     Indication: BREAKTHROUGH PAIN

REACTIONS (23)
  - Vomiting [Not Recovered/Not Resolved]
  - Confusional state [Not Recovered/Not Resolved]
  - Arthritis infective [Not Recovered/Not Resolved]
  - Nausea [Not Recovered/Not Resolved]
  - Small intestinal obstruction [Not Recovered/Not Resolved]
  - Syncope [Not Recovered/Not Resolved]
  - Fatigue [Not Recovered/Not Resolved]
  - Constipation [Not Recovered/Not Resolved]
  - Influenza [Not Recovered/Not Resolved]
  - Burning sensation [Not Recovered/Not Resolved]
  - Fall [Not Recovered/Not Resolved]
  - Pruritus [Not Recovered/Not Resolved]
  - Abdominal discomfort [Not Recovered/Not Resolved]
  - Tibia fracture [Not Recovered/Not Resolved]
  - Somnolence [Not Recovered/Not Resolved]
  - Periprosthetic fracture [Not Recovered/Not Resolved]
  - Disturbance in attention [Not Recovered/Not Resolved]
  - Urinary retention [Not Recovered/Not Resolved]
  - Dizziness [Not Recovered/Not Resolved]
  - Overdose [Not Recovered/Not Resolved]
  - Atrial fibrillation [Not Recovered/Not Resolved]
  - Chest pain [Not Recovered/Not Resolved]
  - Acute kidney injury [Not Recovered/Not Resolved]
